FAERS Safety Report 7794033-5 (Version None)
Quarter: 2011Q4

REPORT INFORMATION
  Report Type: 
  Country: None (occurrence: None)
  Receive Date: 20111004
  Receipt Date: 20100108
  Transmission Date: 20120403
  Serious: No
  Sender: FDA-Public Use
  Company Number: 2010BI001003

PATIENT
  Age: 45 Year
  Sex: Female

DRUGS (2)
  1. TYSABRI [Suspect]
     Indication: MULTIPLE SCLEROSIS
     Route: 042
     Dates: start: 20050113, end: 20050210
  2. TYSABRI [Suspect]
     Route: 042
     Dates: start: 20091116

REACTIONS (10)
  - HAEMANGIOMA [None]
  - DECREASED APPETITE [None]
  - DIZZINESS [None]
  - INSOMNIA [None]
  - VOMITING [None]
  - ARTHRALGIA [None]
  - FATIGUE [None]
  - ASTHENIA [None]
  - NAUSEA [None]
  - INFLUENZA LIKE ILLNESS [None]
